FAERS Safety Report 9862354 (Version 1)
Quarter: 2014Q1

REPORT INFORMATION
  Report Type: Spontaneous
  Country: JP (occurrence: JP)
  Receive Date: 20140203
  Receipt Date: 20140203
  Transmission Date: 20141002
  Serious: Yes (Other)
  Sender: FDA-Public Use
  Company Number: JP-MYLANLABS-2014S1001751

PATIENT
  Age: 8 Decade
  Sex: Male

DRUGS (5)
  1. PREDNISOLONE [Suspect]
     Indication: PROSTATE CANCER
     Route: 048
  2. LEVOFOLINATE CALCIUM [Suspect]
     Indication: PROSTATE CANCER
     Route: 041
  3. AVASTIN /01555201/ [Concomitant]
     Indication: RECTOSIGMOID CANCER
     Route: 041
     Dates: start: 2011
  4. 5-FU [Concomitant]
     Indication: RECTOSIGMOID CANCER
     Route: 041
     Dates: start: 2011
  5. ELPLAT [Concomitant]
     Indication: RECTOSIGMOID CANCER
     Route: 041
     Dates: start: 2011

REACTIONS (2)
  - Neuropathy peripheral [Recovered/Resolved]
  - Gastrointestinal necrosis [Recovered/Resolved]
